FAERS Safety Report 8583699-8 (Version None)
Quarter: 2012Q3

REPORT INFORMATION
  Report Type: 
  Country: None (occurrence: None)
  Receive Date: 20120809
  Receipt Date: 20120711
  Transmission Date: 20120928
  Serious: Yes (Hospitalization)
  Sender: FDA-Public Use
  Company Number: US-009507513-2012SP035659

PATIENT

DRUGS (4)
  1. VICTRELIS [Suspect]
     Indication: HEPATITIS C
     Dosage: 800 MG, Q8H
     Route: 048
     Dates: start: 20120310, end: 20120612
  2. RIBASPHERE [Concomitant]
     Dosage: 600 MG, QD
  3. PEGASYS [Concomitant]
     Indication: HEPATITIS C
     Dosage: 180 ?G, QW
     Route: 058
     Dates: start: 20120213, end: 20120612
  4. RIBASPHERE [Concomitant]
     Indication: HEPATITIS C
     Dosage: 3 DF, BID
     Route: 048
     Dates: start: 20120213, end: 20120612

REACTIONS (3)
  - ANAEMIA [None]
  - OEDEMA [None]
  - FATIGUE [None]
